FAERS Safety Report 7517528-8 (Version None)
Quarter: 2011Q2

REPORT INFORMATION
  Report Type: 
  Country: None (occurrence: None)
  Receive Date: 20110601
  Receipt Date: 20110519
  Transmission Date: 20111010
  Serious: Yes (Hospitalization)
  Sender: FDA-Public Use
  Company Number: CA-BAXTER-2011BH016080

PATIENT
  Age: 84 Year
  Sex: Male

DRUGS (3)
  1. DIANEAL [Suspect]
     Indication: PERITONEAL DIALYSIS
     Route: 033
     Dates: start: 20090202
  2. EXTRANEAL [Suspect]
     Indication: PERITONEAL DIALYSIS
     Route: 033
     Dates: start: 20090202
  3. DIANEAL PD-1 [Suspect]
     Indication: PERITONEAL DIALYSIS
     Route: 033
     Dates: start: 20090202

REACTIONS (2)
  - ASTHENIA [None]
  - PNEUMONIA VIRAL [None]
